FAERS Safety Report 21845258 (Version 1)
Quarter: 2023Q1

REPORT INFORMATION
  Report Type: Spontaneous
  Country: JP (occurrence: JP)
  Receive Date: 20230110
  Receipt Date: 20230110
  Transmission Date: 20230417
  Serious: Yes (Other)
  Sender: FDA-Public Use
  Company Number: JP-002147023-NVSJ2022JP277129

PATIENT
  Age: 88 Year
  Sex: Male

DRUGS (3)
  1. INDACATEROL [Suspect]
     Active Substance: INDACATEROL
     Indication: Emphysema
     Dosage: 150 UG
     Dates: start: 20190115
  2. INDACATEROL [Suspect]
     Active Substance: INDACATEROL
     Dosage: UNK UG
     Route: 048
  3. INDACATEROL [Suspect]
     Active Substance: INDACATEROL
     Dosage: 150 UG

REACTIONS (3)
  - Dementia [Unknown]
  - Concomitant disease progression [Unknown]
  - Incorrect route of product administration [Unknown]
